FAERS Safety Report 22165231 (Version 1)
Quarter: 2023Q2

REPORT INFORMATION
  Report Type: Spontaneous
  Country: CN (occurrence: None)
  Receive Date: 20230403
  Receipt Date: 20230403
  Transmission Date: 20230721
  Serious: Yes (Other)
  Sender: FDA-Public Use
  Company Number: CN-ROCHE-3319285

PATIENT
  Age: 43 Year
  Sex: Female

DRUGS (4)
  1. MABTHERA [Suspect]
     Active Substance: RITUXIMAB
     Indication: Neuromyelitis optica spectrum disorder
     Route: 041
  2. ACTEMRA [Suspect]
     Active Substance: TOCILIZUMAB
     Indication: Neuromyelitis optica spectrum disorder
     Dosage: PER MONTH, FOR 4 MONTHS.
     Route: 042
  3. HUMAN IMMUNOGLOBULIN G [Concomitant]
     Active Substance: HUMAN IMMUNOGLOBULIN G
     Indication: Neuromyelitis optica spectrum disorder
     Route: 042
  4. MITOXANTRONE [Concomitant]
     Active Substance: MITOXANTRONE HYDROCHLORIDE
     Indication: Neuromyelitis optica spectrum disorder
     Dosage: FOR 9 MONTHS, TOTAL DOSE 75MG/M2
     Route: 042

REACTIONS (5)
  - Epilepsy [Unknown]
  - Hemianopia homonymous [Unknown]
  - Urinary tract disorder [Unknown]
  - Defaecation disorder [Unknown]
  - Off label use [Unknown]
